FAERS Safety Report 5678710-8 (Version None)
Quarter: 2008Q1

REPORT INFORMATION
  Report Type: 
  Country: None (occurrence: None)
  Receive Date: 20080320
  Receipt Date: 20080310
  Transmission Date: 20080703
  Serious: Yes (Hospitalization)
  Sender: FDA-Public Use
  Company Number: 2008AL001494

PATIENT
  Age: 42 Year
  Sex: Female

DRUGS (1)
  1. PROPYLTHIOURACIL [Suspect]
     Indication: HYPERTHYROIDISM
     Dosage: 100 MG; TID;

REACTIONS (21)
  - AGRANULOCYTOSIS [None]
  - BONE MARROW FAILURE [None]
  - CHILLS [None]
  - COUGH [None]
  - DYSPHAGIA [None]
  - ENTEROBACTER BACTERAEMIA [None]
  - ERYTHROID SERIES ABNORMAL [None]
  - HEADACHE [None]
  - HYPERTHYROIDISM [None]
  - MALAISE [None]
  - MOUTH ULCERATION [None]
  - NO THERAPEUTIC RESPONSE [None]
  - PALPITATIONS [None]
  - PHARYNGOLARYNGEAL PAIN [None]
  - PLASMA CELLS PRESENT [None]
  - PNEUMONIA KLEBSIELLA [None]
  - PYREXIA [None]
  - RASH [None]
  - RHINORRHOEA [None]
  - STAPHYLOCOCCAL INFECTION [None]
  - WHITE BLOOD CELL COUNT DECREASED [None]
